FAERS Safety Report 5949474-5 (Version None)
Quarter: 2008Q4

REPORT INFORMATION
  Report Type: 
  Country: None (occurrence: None)
  Receive Date: 20081112
  Receipt Date: 20081104
  Transmission Date: 20090506
  Serious: Yes (Other)
  Sender: FDA-Public Use
  Company Number: PHEH2008US09909

PATIENT
  Sex: Male

DRUGS (5)
  1. TEGRETOL-XR [Suspect]
     Indication: OLIGODENDROGLIOMA
     Dosage: 800 MG, QD
     Route: 048
     Dates: start: 20081001
  2. TOPAMAX [Concomitant]
  3. NEURONTIN [Concomitant]
  4. DIAZEPAM [Concomitant]
  5. PRILOSEC [Concomitant]

REACTIONS (1)
  - PSYCHOMOTOR SEIZURES [None]
